FAERS Safety Report 8159059-0 (Version None)
Quarter: 2012Q1

REPORT INFORMATION
  Report Type: 
  Country: None (occurrence: None)
  Receive Date: 20120103
  Receipt Date: 20110901
  Transmission Date: 20120608
  Serious: Yes (Hospitalization)
  Sender: FDA-Public Use
  Company Number: AE-2011-001256

PATIENT
  Sex: Female

DRUGS (3)
  1. INCIVEK [Suspect]
     Dosage: ORAL
     Route: 048
     Dates: start: 20110801
  2. RIBAVIRIN [Concomitant]
  3. PEGINTERFERON (PEG-INTERFERON ALFA-2A) [Concomitant]

REACTIONS (2)
  - NAUSEA [None]
  - VOMITING [None]
